FAERS Safety Report 12578059 (Version 2)
Quarter: 2016Q3

REPORT INFORMATION
  Report Type: Spontaneous
  Country: CH (occurrence: CH)
  Receive Date: 20160721
  Receipt Date: 20160722
  Transmission Date: 20161109
  Serious: Yes (Disabling, Other)
  Sender: FDA-Public Use
  Company Number: CH-AMGEN-CHESP2016092079

PATIENT
  Age: 63 Year
  Sex: Female

DRUGS (18)
  1. SPIRICORT [Suspect]
     Active Substance: PREDNISOLONE
     Dosage: 7.5 MG, QD
     Route: 048
     Dates: start: 201412
  2. OMEPRAZOLE. [Suspect]
     Active Substance: OMEPRAZOLE
     Dosage: 40 MG, TID
     Route: 048
     Dates: start: 201606
  3. SPIRICORT [Suspect]
     Active Substance: PREDNISOLONE
     Dosage: 20 MG, QD
     Route: 048
     Dates: start: 201408
  4. SPIRICORT [Suspect]
     Active Substance: PREDNISOLONE
     Dosage: 2.5 MG, QD
     Route: 048
     Dates: start: 201502
  5. PRIVIGEN [Concomitant]
     Active Substance: HUMAN IMMUNOGLOBULIN G
     Dosage: 110 G, Q6WK
     Route: 042
     Dates: start: 20151102
  6. SPIRICORT [Suspect]
     Active Substance: PREDNISOLONE
     Dosage: 10 MG, QD
     Route: 048
     Dates: start: 201411
  7. OMEPRAZOLE. [Suspect]
     Active Substance: OMEPRAZOLE
     Dosage: 40 MG, BID
     Route: 048
     Dates: start: 201604
  8. ACCUPRO [Concomitant]
     Active Substance: QUINAPRIL HYDROCHLORIDE
     Dosage: 10 MG, QD
     Route: 048
     Dates: start: 201407
  9. CALCIMAGON D3 [Concomitant]
     Active Substance: CALCIUM\CHOLECALCIFEROL
     Dosage: 1 DF, QOD
     Route: 048
     Dates: start: 201407
  10. CELLCEPT [Concomitant]
     Active Substance: MYCOPHENOLATE MOFETIL\MYCOPHENOLATE MOFETIL HYDROCHLORIDE
     Dosage: 500 MG, QID
     Route: 048
     Dates: start: 20140717
  11. PROLIA [Suspect]
     Active Substance: DENOSUMAB
     Indication: OSTEOPOROSIS POSTMENOPAUSAL
     Dosage: 60 MG, Q6MO
     Route: 058
     Dates: start: 201103, end: 201303
  12. SPIRICORT [Suspect]
     Active Substance: PREDNISOLONE
     Indication: DERMATOMYOSITIS
     Dosage: 1 DF, QD
     Route: 048
     Dates: start: 201407, end: 201503
  13. EUTHYROX [Concomitant]
     Active Substance: LEVOTHYROXINE SODIUM
     Dosage: 100 MUG, QD
     Route: 048
  14. SPIRICORT [Suspect]
     Active Substance: PREDNISOLONE
     Dosage: 30 MG, QD
     Route: 048
     Dates: start: 201407
  15. SPIRICORT [Suspect]
     Active Substance: PREDNISOLONE
     Dosage: 15 MG, QD
     Route: 048
     Dates: start: 201410
  16. OMEPRAZOLE. [Suspect]
     Active Substance: OMEPRAZOLE
     Indication: PRODUCT USED FOR UNKNOWN INDICATION
     Dosage: 20 MG, QD
     Route: 048
     Dates: start: 201407
  17. FORSTEO [Concomitant]
     Active Substance: TERIPARATIDE
     Dosage: 20 MUG, QD
     Route: 058
     Dates: start: 201506
  18. ZOLEDRONATE [Concomitant]
     Active Substance: ZOLEDRONIC ACID
     Dosage: UNK
     Dates: start: 201310

REACTIONS (4)
  - Bone density decreased [Recovered/Resolved with Sequelae]
  - Rebound effect [Recovered/Resolved with Sequelae]
  - Lumbar vertebral fracture [Recovered/Resolved with Sequelae]
  - Thoracic vertebral fracture [Recovered/Resolved with Sequelae]

NARRATIVE: CASE EVENT DATE: 2013
